FAERS Safety Report 8239258-X (Version None)
Quarter: 2012Q1

REPORT INFORMATION
  Report Type: 
  Country: None (occurrence: None)
  Receive Date: 20120328
  Receipt Date: 20120322
  Transmission Date: 20120608
  Serious: No
  Sender: FDA-Public Use
  Company Number: US-BIOGENIDEC-2012BI010328

PATIENT
  Age: 52 Year
  Sex: Female

DRUGS (3)
  1. MOBIC [Concomitant]
     Indication: PRODUCT USED FOR UNKNOWN INDICATION
     Route: 048
     Dates: start: 20040101
  2. TYSABRI [Suspect]
     Indication: MULTIPLE SCLEROSIS
     Route: 042
  3. TYSABRI [Suspect]
     Route: 042
     Dates: start: 20080618

REACTIONS (4)
  - TACHYCARDIA [None]
  - DRUG HYPERSENSITIVITY [None]
  - COCCYDYNIA [None]
  - OEDEMA PERIPHERAL [None]
